FAERS Safety Report 20868966 (Version 2)
Quarter: 2022Q3

REPORT INFORMATION
  Report Type: Spontaneous
  Country: FR (occurrence: FR)
  Receive Date: 20220524
  Receipt Date: 20220815
  Transmission Date: 20221026
  Serious: Yes (Hospitalization)
  Sender: FDA-Public Use
  Company Number: None

PATIENT
  Age: 58 Year
  Sex: Female
  Weight: 60 kg

DRUGS (14)
  1. DOXYCYCLINE [Suspect]
     Active Substance: DOXYCYCLINE
     Indication: Psoriasis
     Dosage: UNK
     Route: 065
     Dates: end: 20210609
  2. PANTOPRAZOLE SODIUM [Suspect]
     Active Substance: PANTOPRAZOLE SODIUM
     Indication: Mallory-Weiss syndrome
     Dosage: 80 MG, QD
     Route: 042
     Dates: start: 20210610, end: 20210615
  3. PREDNISONE [Suspect]
     Active Substance: PREDNISONE
     Indication: Psoriasis
     Dosage: UNK
     Route: 065
     Dates: end: 20210609
  4. TYGACIL [Suspect]
     Active Substance: TIGECYCLINE
     Indication: Septic shock
     Dosage: 100 MG, QD (50MG 2/J)
     Route: 042
     Dates: start: 20210609, end: 20210611
  5. KANOKAD [Suspect]
     Active Substance: COAGULATION FACTOR VII HUMAN\COAGULATION FACTOR X HUMAN\FACTOR IX COMPLEX\PROTHROMBIN
     Indication: Anticoagulation drug level increased
     Dosage: 1500 IU, QD
     Route: 042
     Dates: start: 20210610, end: 20210610
  6. METRONIDAZOLE [Suspect]
     Active Substance: METRONIDAZOLE
     Indication: Septic shock
     Dosage: 1500 MG, QD (500MG 3/J)
     Route: 042
     Dates: start: 20210609, end: 20210611
  7. ERYTHROMYCIN [Suspect]
     Active Substance: ERYTHROMYCIN
     Indication: Oesophagogastroduodenoscopy
     Dosage: 500 MG, QD
     Route: 042
     Dates: start: 20210610, end: 20210610
  8. IOMERON [Suspect]
     Active Substance: IOMEPROL
     Indication: Computerised tomogram
     Dosage: 1 DOSAGE FORM, QD (350 MG IODE/ML)
     Route: 042
     Dates: start: 20210610, end: 20210610
  9. HYDROCORTISONE [Suspect]
     Active Substance: HYDROCORTISONE
     Indication: Shock haemorrhagic
     Dosage: 100 MG, QD
     Route: 042
     Dates: start: 20210609, end: 20210611
  10. PRIMPERAN [Suspect]
     Active Substance: METOCLOPRAMIDE HYDROCHLORIDE
     Indication: Vomiting
     Dosage: 30 MG, QD (10MG 3/J)
     Route: 065
     Dates: start: 20210610, end: 20210612
  11. NERISONE [Suspect]
     Active Substance: DIFLUCORTOLONE VALERATE
     Indication: Psoriasis
     Dosage: UNK
     Route: 065
     Dates: end: 20210609
  12. PERINDOPRIL [Concomitant]
     Active Substance: PERINDOPRIL
     Indication: Product used for unknown indication
     Dosage: UNK
     Route: 065
  13. FOLIC ACID [Concomitant]
     Active Substance: FOLIC ACID
     Indication: Product used for unknown indication
     Dosage: UNK
     Route: 065
  14. METHOTREXATE [Concomitant]
     Active Substance: METHOTREXATE
     Indication: Product used for unknown indication
     Dosage: UNK
     Route: 065

REACTIONS (1)
  - Pustular psoriasis [Recovered/Resolved]

NARRATIVE: CASE EVENT DATE: 20210611
